FAERS Safety Report 9753165 (Version 1)
Quarter: 2013Q4

REPORT INFORMATION
  Report Type: Spontaneous
  Country: US (occurrence: US)
  Receive Date: 20131213
  Receipt Date: 20131213
  Transmission Date: 20140711
  Serious: No
  Sender: FDA-Public Use
  Company Number: US-GILEAD-2010-0026784

PATIENT
  Sex: Male

DRUGS (9)
  1. LETAIRIS [Suspect]
     Indication: PULMONARY ARTERIAL HYPERTENSION
     Route: 048
     Dates: start: 20090331
  2. ADCIRCA [Concomitant]
  3. DIOVAN [Concomitant]
  4. ZETIA [Concomitant]
  5. LEVOTHYROID [Concomitant]
  6. ZYRTEC [Concomitant]
  7. SAW PALMETTO [Concomitant]
  8. FISH OIL [Concomitant]
  9. MULTIVITAMIN [Concomitant]

REACTIONS (2)
  - Constipation [Unknown]
  - Abdominal discomfort [Unknown]
